FAERS Safety Report 21024444 (Version 1)
Quarter: 2022Q2

REPORT INFORMATION
  Report Type: Spontaneous
  Country: US (occurrence: US)
  Receive Date: 20220629
  Receipt Date: 20220629
  Transmission Date: 20220720
  Serious: Yes (Hospitalization)
  Sender: FDA-Public Use
  Company Number: US-GW PHARMA-2022-US-021785

PATIENT
  Sex: Male
  Weight: 39.3 kg

DRUGS (1)
  1. EPIDIOLEX [Suspect]
     Active Substance: CANNABIDIOL
     Indication: Product used for unknown indication
     Dosage: 2.5 MILLILITER IN THE MORNING AND 3.5 MILLILITER IN THE EVENING

REACTIONS (2)
  - Hospitalisation [Unknown]
  - Product quality issue [Unknown]
